FAERS Safety Report 7565018-9 (Version None)
Quarter: 2011Q2

REPORT INFORMATION
  Report Type: 
  Country: None (occurrence: None)
  Receive Date: 20110622
  Receipt Date: 20110613
  Transmission Date: 20111010
  Serious: Yes (Other)
  Sender: FDA-Public Use
  Company Number: US-MYLANLABS-2011S1006606

PATIENT
  Age: 27 Year
  Sex: Male
  Weight: 66.68 kg

DRUGS (7)
  1. BENZTROPINE MESYLATE [Concomitant]
     Dates: start: 20110115
  2. HALDOL [Concomitant]
     Dates: start: 20110115
  3. CLOZAPINE [Suspect]
     Indication: PSYCHOTIC DISORDER
     Route: 048
     Dates: start: 20110323, end: 20110325
  4. CLOZAPINE [Suspect]
     Indication: SCHIZOPHRENIA, PARANOID TYPE
     Route: 048
     Dates: start: 20110323, end: 20110325
  5. ZYPREXA ZYDIS [Concomitant]
     Dates: start: 20110224
  6. CLOZAPINE [Suspect]
     Indication: BIPOLAR DISORDER
     Route: 048
     Dates: start: 20110323, end: 20110325
  7. LITHIUM [Concomitant]
     Dates: start: 20110301, end: 20110518

REACTIONS (1)
  - GRANULOCYTOPENIA [None]
